FAERS Safety Report 9152230 (Version 1)
Quarter: 2013Q1

REPORT INFORMATION
  Report Type: Spontaneous
  Country: DE (occurrence: DE)
  Receive Date: 20130308
  Receipt Date: 20130308
  Transmission Date: 20140127
  Serious: No
  Sender: FDA-Public Use
  Company Number: DE-ELI_LILLY_AND_COMPANY-DE201302009637

PATIENT
  Age: 53 Year
  Sex: Female

DRUGS (5)
  1. CYMBALTA [Suspect]
     Indication: DEPRESSION
     Dosage: 60 MG, UNKNOWN
     Route: 048
     Dates: start: 201301
  2. NOVALGIN [Concomitant]
     Dosage: UNK, UNKNOWN
  3. LYRICA [Concomitant]
     Dosage: 150 MG, BID
  4. L-THYROXIN [Concomitant]
     Dosage: 50 MG, EACH MORNING
  5. RESTEX [Concomitant]
     Dosage: UNK, EACH EVENING

REACTIONS (2)
  - Liver function test abnormal [Not Recovered/Not Resolved]
  - Pruritus [Not Recovered/Not Resolved]
